FAERS Safety Report 25553048 (Version 3)
Quarter: 2025Q3

REPORT INFORMATION
  Report Type: Spontaneous
  Country: EU (occurrence: EU)
  Receive Date: 20250715
  Receipt Date: 20250901
  Transmission Date: 20251021
  Serious: Yes (Other)
  Sender: JOHNSON AND JOHNSON
  Company Number: EU-JNJFOC-20250716964

PATIENT
  Age: 67 Year
  Sex: Male

DRUGS (2)
  1. XARELTO [Suspect]
     Active Substance: RIVAROXABAN
     Indication: Arrhythmia
     Dosage: 20 MG, QD
     Dates: start: 202410
  2. XARELTO [Suspect]
     Active Substance: RIVAROXABAN
     Dates: start: 20250715

REACTIONS (6)
  - Prostatic operation [Unknown]
  - Haematuria [Not Recovered/Not Resolved]
  - Nephrolithiasis [Unknown]
  - Urinary tract infection [Recovering/Resolving]
  - Wrong technique in product usage process [Unknown]
  - Blood urine present [Unknown]

NARRATIVE: CASE EVENT DATE: 20241201
